FAERS Safety Report 5753815-1 (Version None)
Quarter: 2008Q2

REPORT INFORMATION
  Report Type: 
  Country: None (occurrence: None)
  Receive Date: 20080530
  Receipt Date: 20080523
  Transmission Date: 20081010
  Serious: Yes (Other)
  Sender: FDA-Public Use
  Company Number: US-MERCK-0709USA01405

PATIENT
  Age: 67 Year
  Sex: Female
  Weight: 70 kg

DRUGS (5)
  1. FOSAMAX [Suspect]
     Indication: OSTEOPOROSIS
     Route: 048
     Dates: start: 20070908, end: 20070908
  2. VYTORIN [Concomitant]
     Indication: CARDIAC DISORDER
     Route: 048
  3. SERTRALINE HYDROCHLORIDE [Concomitant]
     Indication: DEPRESSION
     Route: 048
  4. ISOSORBIDE [Concomitant]
     Indication: CARDIAC DISORDER
     Route: 048
  5. TAZTIA XT [Concomitant]
     Indication: CARDIAC DISORDER
     Route: 048

REACTIONS (5)
  - BACK PAIN [None]
  - HEADACHE [None]
  - JOINT STIFFNESS [None]
  - MUSCULOSKELETAL STIFFNESS [None]
  - THROAT TIGHTNESS [None]
